FAERS Safety Report 7190243-9 (Version None)
Quarter: 2010Q4

REPORT INFORMATION
  Report Type: 
  Country: None (occurrence: None)
  Receive Date: 20101223
  Receipt Date: 20101209
  Transmission Date: 20110411
  Serious: Yes (Other)
  Sender: FDA-Public Use
  Company Number: PHHY2009US66437

PATIENT
  Sex: Male

DRUGS (2)
  1. EXJADE [Suspect]
     Indication: IRON OVERLOAD
     Dosage: 1000 MG IN AM AND 500 MG IN PM
     Route: 048
     Dates: start: 20081203
  2. REVLIMID [Concomitant]
     Indication: MYELODYSPLASTIC SYNDROME
     Dosage: 10 MG, QD
     Route: 048
     Dates: start: 20100809

REACTIONS (3)
  - ASTHENOPIA [None]
  - LACRIMATION INCREASED [None]
  - VISION BLURRED [None]
